FAERS Safety Report 20707910 (Version 1)
Quarter: 2022Q2

REPORT INFORMATION
  Report Type: Spontaneous
  Country: IN (occurrence: IN)
  Receive Date: 20220414
  Receipt Date: 20220414
  Transmission Date: 20220721
  Serious: Yes (Other)
  Sender: FDA-Public Use
  Company Number: IN-SUN PHARMACEUTICAL INDUSTRIES LTD-2022R1-332661

PATIENT
  Age: 64 Year
  Sex: Male

DRUGS (1)
  1. PRAMIPEXOLE [Suspect]
     Active Substance: PRAMIPEXOLE
     Indication: Libido increased
     Dosage: 3 MILLIGRAM
     Route: 065

REACTIONS (5)
  - Impulse-control disorder [Unknown]
  - Drug abuse [Unknown]
  - Behaviour disorder [Unknown]
  - Hypersexuality [Unknown]
  - Euphoric mood [Unknown]
